FAERS Safety Report 6197370-3 (Version None)
Quarter: 2009Q2

REPORT INFORMATION
  Report Type: 
  Country: None (occurrence: None)
  Receive Date: 20090518
  Receipt Date: 20090507
  Transmission Date: 20091009
  Serious: Yes (Other)
  Sender: FDA-Public Use
  Company Number: 2008US003290

PATIENT
  Age: 68 Year
  Sex: Female
  Weight: 90.7 kg

DRUGS (3)
  1. AMEVIVE [Suspect]
     Indication: PSORIASIS
     Dosage: 7.5 MG, WEEKLY, INTRAMUSCULAR
     Route: 030
     Dates: start: 20041224, end: 20050410
  2. HUMIRA [Concomitant]
  3. ENBREL [Concomitant]

REACTIONS (2)
  - DRUG INEFFECTIVE [None]
  - TYPE 2 DIABETES MELLITUS [None]
